FAERS Safety Report 9663486 (Version 3)
Quarter: 2015Q2

REPORT INFORMATION
  Report Type: Spontaneous
  Country: AR (occurrence: AR)
  Receive Date: 20131101
  Receipt Date: 20150416
  Transmission Date: 20150821
  Serious: Yes (Hospitalization, Other)
  Sender: FDA-Public Use
  Company Number: AR-AMGEN-ARGSP2013076534

PATIENT
  Age: 30 Year
  Sex: Female

DRUGS (5)
  1. ENBREL [Suspect]
     Active Substance: ETANERCEPT
     Indication: RHEUMATOID ARTHRITIS
     Dosage: 50 MG, WEEKLY
     Route: 065
     Dates: start: 20130525, end: 2013
  2. ORAVIL                             /00318501/ [Concomitant]
     Dosage: UNK
     Dates: start: 201311
  3. CALCIMAX                           /00944201/ [Concomitant]
     Dosage: UNK
     Dates: start: 201311
  4. METICORTEN [Concomitant]
     Active Substance: PREDNISONE
     Dosage: UNK
     Dates: start: 1989
  5. NAPROXENO / PARACETAMOL [Concomitant]
     Dosage: UNK
     Dates: start: 1989

REACTIONS (8)
  - Bone decalcification [Unknown]
  - Lower limb fracture [Recovering/Resolving]
  - Arthropathy [Recovering/Resolving]
  - Osteoarthritis [Recovered/Resolved]
  - Alopecia [Unknown]
  - Injection site erythema [Not Recovered/Not Resolved]
  - Femur fracture [Recovered/Resolved]
  - Pruritus [Not Recovered/Not Resolved]

NARRATIVE: CASE EVENT DATE: 2013
